FAERS Safety Report 9800795 (Version 1)
Quarter: 2014Q1

REPORT INFORMATION
  Report Type: Spontaneous
  Country: US (occurrence: US)
  Receive Date: 20140107
  Receipt Date: 20140107
  Transmission Date: 20141002
  Serious: No
  Sender: FDA-Public Use
  Company Number: US-BAYER-2013-158532

PATIENT
  Age: 83 Year
  Sex: Male
  Weight: 66 kg

DRUGS (1)
  1. ALEVE TABLET [Suspect]
     Indication: BACK PAIN
     Dosage: 1 DF, BID
     Route: 048
     Dates: start: 20131221, end: 20131222

REACTIONS (3)
  - Insomnia [None]
  - Therapeutic response unexpected [None]
  - Drug ineffective [None]
